FAERS Safety Report 7659742-7 (Version None)
Quarter: 2011Q3

REPORT INFORMATION
  Report Type: 
  Country: None (occurrence: None)
  Receive Date: 20110805
  Receipt Date: 20110727
  Transmission Date: 20111222
  Serious: Yes (Hospitalization, Other)
  Sender: FDA-Public Use
  Company Number: PHHY2011FR67813

PATIENT
  Age: 83 Year
  Sex: Female

DRUGS (4)
  1. AMIODARONE HCL [Suspect]
     Dosage: 200 MG, UNK
  2. FLUINDIONE [Concomitant]
     Dosage: 50 MG, UNK
  3. CITALOPRAM HYDROBROMIDE [Suspect]
     Dosage: 20 MG, UNK
  4. LERCANIDIPINE [Concomitant]
     Dosage: 10 MG, UNK

REACTIONS (8)
  - MITRAL VALVE INCOMPETENCE [None]
  - TORSADE DE POINTES [None]
  - DIZZINESS [None]
  - VENTRICULAR EXTRASYSTOLES [None]
  - ELECTROCARDIOGRAM QT PROLONGED [None]
  - HYPOKALAEMIA [None]
  - LEFT VENTRICULAR HYPERTROPHY [None]
  - PALPITATIONS [None]
